FAERS Safety Report 20572843 (Version 2)
Quarter: 2022Q1

REPORT INFORMATION
  Report Type: Spontaneous
  Country: US (occurrence: US)
  Receive Date: 20220309
  Receipt Date: 20220321
  Transmission Date: 20220423
  Serious: No
  Sender: FDA-Public Use
  Company Number: US-PFIZER INC-202200358162

PATIENT
  Age: 33 Year
  Sex: Female
  Weight: 70.31 kg

DRUGS (1)
  1. PAXLOVID [Suspect]
     Active Substance: NIRMATRELVIR\RITONAVIR
     Indication: COVID-19
     Dosage: 250 MG, 1X/DAY (ONE 100MG AND TWO 150MG TABLETS, BY MOUTH )
     Route: 048
     Dates: start: 20220301, end: 20220302

REACTIONS (4)
  - Nausea [Recovering/Resolving]
  - Retching [Recovering/Resolving]
  - Dysgeusia [Recovering/Resolving]
  - Diarrhoea [Not Recovered/Not Resolved]

NARRATIVE: CASE EVENT DATE: 20220301
